FAERS Safety Report 8384276-4 (Version None)
Quarter: 2012Q2

REPORT INFORMATION
  Report Type: 
  Country: None (occurrence: None)
  Receive Date: 20120524
  Receipt Date: 20120517
  Transmission Date: 20120825
  Serious: Yes (Other)
  Sender: FDA-Public Use
  Company Number: US-BRISTOL-MYERS SQUIBB COMPANY-16601064

PATIENT
  Age: 37 Year
  Sex: Female

DRUGS (2)
  1. ABILIFY [Suspect]
     Indication: BIPOLAR DISORDER
     Dosage: OFF 2 MONTHS AGO
     Dates: end: 20120301
  2. METHAMPHETAMINE HYDROCHLORIDE [Suspect]
     Dosage: PRIOR TO TAKING ABILIFY,HEAVY METHAMPHETAMINE,OCCASIONALLY USING

REACTIONS (2)
  - DRUG ABUSE [None]
  - SPEECH DISORDER [None]
